FAERS Safety Report 15703042 (Version 1)
Quarter: 2018Q4

REPORT INFORMATION
  Report Type: Spontaneous
  Country: US (occurrence: US)
  Receive Date: 20181208
  Receipt Date: 20181208
  Transmission Date: 20190205
  Serious: Yes (Life-Threatening, Hospitalization)
  Sender: FDA-Public Use
  Company Number: None

PATIENT
  Age: 35 Year
  Sex: Male
  Weight: 142.2 kg

DRUGS (4)
  1. PREDNISONE. [Suspect]
     Active Substance: PREDNISONE
     Indication: BACK PAIN
  2. MEN^S MULTIVITAMIN [Concomitant]
  3. TYLENOL EXTRA STRENGTH [Concomitant]
     Active Substance: ACETAMINOPHEN
  4. AMINO ACIDS [Concomitant]
     Active Substance: AMINO ACIDS

REACTIONS (7)
  - Palpitations [None]
  - Sinus tachycardia [None]
  - Inappropriate affect [None]
  - Anxiety [None]
  - Migraine [None]
  - Emotional distress [None]
  - Panic attack [None]

NARRATIVE: CASE EVENT DATE: 20181124
